FAERS Safety Report 8506428-2 (Version None)
Quarter: 2012Q3

REPORT INFORMATION
  Report Type: 
  Country: None (occurrence: None)
  Receive Date: 20120712
  Receipt Date: 20120628
  Transmission Date: 20120928
  Serious: Yes (Hospitalization, Other)
  Sender: FDA-Public Use
  Company Number: US-ROCHE-791066

PATIENT
  Sex: Male
  Weight: 77.18 kg

DRUGS (3)
  1. ACCUTANE [Suspect]
     Indication: ACNE
     Route: 065
     Dates: start: 19990115, end: 19990531
  2. ACCUTANE [Suspect]
     Dates: start: 19991001, end: 20000101
  3. ACCUTANE [Suspect]
     Dates: start: 20000301, end: 20000401

REACTIONS (12)
  - DEPRESSION [None]
  - OTITIS MEDIA [None]
  - LIP DRY [None]
  - INFLAMMATORY BOWEL DISEASE [None]
  - XEROSIS [None]
  - GASTROENTERITIS [None]
  - COLITIS ULCERATIVE [None]
  - SINUSITIS [None]
  - PHARYNGITIS [None]
  - STRESS [None]
  - ANAL FISTULA [None]
  - BIPOLAR DISORDER [None]
